FAERS Safety Report 5431156-X (Version None)
Quarter: 2007Q3

REPORT INFORMATION
  Report Type: 
  Country: None (occurrence: None)
  Receive Date: 20070830
  Receipt Date: 20070308
  Transmission Date: 20080115
  Serious: No
  Sender: FDA-Public Use
  Company Number: A0642480A

PATIENT
  Age: 28 Year
  Sex: Female

DRUGS (1)
  1. WELLBUTRIN XL [Suspect]
     Indication: DRUG USE FOR UNKNOWN INDICATION
     Route: 048

REACTIONS (7)
  - ANXIETY [None]
  - CRYING [None]
  - DISABILITY [None]
  - EMOTIONAL DISORDER [None]
  - FEAR [None]
  - ILL-DEFINED DISORDER [None]
  - SOCIAL AVOIDANT BEHAVIOUR [None]
